FAERS Safety Report 14462972 (Version 1)
Quarter: 2018Q1

REPORT INFORMATION
  Report Type: Spontaneous
  Country: TW (occurrence: TW)
  Receive Date: 20180130
  Receipt Date: 20180130
  Transmission Date: 20180509
  Serious: Yes (Other)
  Sender: FDA-Public Use
  Company Number: TW-BAUSCH-BL-2018-002506

PATIENT
  Age: 37 Year
  Sex: Male

DRUGS (1)
  1. METOCLOPRAMIDE. [Suspect]
     Active Substance: METOCLOPRAMIDE
     Indication: PRODUCT USED FOR UNKNOWN INDICATION
     Route: 065

REACTIONS (2)
  - Azotaemia [Unknown]
  - Dyskinesia [Recovering/Resolving]

NARRATIVE: CASE EVENT DATE: 201701
